FAERS Safety Report 6626143-X (Version None)
Quarter: 2010Q1

REPORT INFORMATION
  Report Type: 
  Country: None (occurrence: None)
  Receive Date: 20100310
  Receipt Date: 20100226
  Transmission Date: 20100710
  Serious: Yes (Other)
  Sender: FDA-Public Use
  Company Number: PHHY2010FR08758

PATIENT
  Age: 58 Year
  Sex: Male
  Weight: 102 kg

DRUGS (4)
  1. AFINITOR [Suspect]
     Indication: RENAL CANCER
     Dosage: 10 MG/DAY
     Route: 048
     Dates: start: 20100115
  2. PLAVIX [Concomitant]
     Indication: ARTERIAL BYPASS OPERATION
     Dosage: 75 MG, QD
     Dates: start: 20060101
  3. EUPANTOL [Concomitant]
     Indication: GASTROOESOPHAGEAL REFLUX DISEASE
     Dosage: 20 MG, QD
     Dates: start: 19970101
  4. BROMAZEPAM [Concomitant]
     Indication: ANXIETY
     Dosage: 3 MG DAILY
     Dates: start: 20080101

REACTIONS (4)
  - CONDITION AGGRAVATED [None]
  - FOLLICULITIS [None]
  - PRURITUS [None]
  - RASH ERYTHEMATOUS [None]
